FAERS Safety Report 19200562 (Version 1)
Quarter: 2021Q2

REPORT INFORMATION
  Report Type: Spontaneous
  Country: US (occurrence: US)
  Receive Date: 20210430
  Receipt Date: 20210430
  Transmission Date: 20210717
  Serious: Yes (Life-Threatening, Hospitalization)
  Sender: FDA-Public Use
  Company Number: US-MYLANLABS-2021M1025255

PATIENT
  Age: 58 Year
  Sex: Female

DRUGS (1)
  1. BACLOFEN. [Suspect]
     Active Substance: BACLOFEN
     Indication: PRODUCT USED FOR UNKNOWN INDICATION
     Dosage: 30 MILLIGRAM, QD
     Route: 048

REACTIONS (12)
  - Withdrawal syndrome [Recovering/Resolving]
  - Muscle rigidity [Recovering/Resolving]
  - Hyperpyrexia [Recovering/Resolving]
  - Tremor [Recovering/Resolving]
  - Paraesthesia [Recovering/Resolving]
  - Clonus [Recovering/Resolving]
  - Hallucination [Recovering/Resolving]
  - Respiratory distress [Recovering/Resolving]
  - Hypertension [Recovering/Resolving]
  - Tachypnoea [Recovering/Resolving]
  - Eye disorder [Recovering/Resolving]
  - Tachycardia [Recovering/Resolving]
